FAERS Safety Report 25622669 (Version 1)
Quarter: 2025Q3

REPORT INFORMATION
  Report Type: Spontaneous
  Country: US (occurrence: None)
  Receive Date: 20250729
  Receipt Date: 20250729
  Transmission Date: 20251020
  Serious: Yes (Other)
  Sender: FDA-CTU
  Company Number: None

PATIENT
  Age: 37 Year
  Sex: Female
  Weight: 55.8 kg

DRUGS (1)
  1. DUPIXENT [Suspect]
     Active Substance: DUPILUMAB
     Route: 030
     Dates: start: 20241007, end: 20241104

REACTIONS (2)
  - Tendon rupture [None]
  - Gait inability [None]

NARRATIVE: CASE EVENT DATE: 20250725
